FAERS Safety Report 15481421 (Version 2)
Quarter: 2018Q4

REPORT INFORMATION
  Report Type: Spontaneous
  Country: DE (occurrence: DE)
  Receive Date: 20181010
  Receipt Date: 20181011
  Transmission Date: 20190205
  Serious: Yes (Hospitalization, Other)
  Sender: FDA-Public Use
  Company Number: DE-TEVA-2018-DE-962789

PATIENT
  Age: 93 Year
  Sex: Female

DRUGS (7)
  1. IBUFLAM 600MG LICHTENSTEIN [Suspect]
     Active Substance: IBUPROFEN
     Dosage: 600 MILLIGRAM DAILY; 0-1-0
     Dates: start: 20140925
  2. BISOPROLOL-RATIOPHARM 5 MG TABLETTEN [Suspect]
     Active Substance: BISOPROLOL
     Dosage: 5 MILLIGRAM DAILY; 0-1-0
     Dates: start: 20180125
  3. AMLODIPIN (BESILAT) DEXCEL TABLETS [Suspect]
     Active Substance: AMLODIPINE BESYLATE
     Dosage: 5 MILLIGRAM DAILY; 0-1-0
     Dates: start: 20141003
  4. PANTOPRAZOL TAD 20 MG MAGENSAFTRESISTENDE TABLETTEN [Suspect]
     Active Substance: PANTOPRAZOLE SODIUM
     Dosage: 1-0-0
     Dates: start: 20141003
  5. XALATAN [Concomitant]
     Active Substance: LATANOPROST
     Dosage: 1-0-0
     Route: 065
  6. HCT DEXCEL 12,5 MG TABLETS [Suspect]
     Active Substance: HYDROCHLOROTHIAZIDE
     Dosage: 12.5 MILLIGRAM DAILY; 1-0-0
     Dates: start: 20141003
  7. ATARAX [Suspect]
     Active Substance: HYDROXYZINE HYDROCHLORIDE
     Dosage: 25 MILLIGRAM DAILY; 0-0-1
     Dates: start: 20180118

REACTIONS (13)
  - Pruritus [Unknown]
  - Cyanosis [Unknown]
  - Lichenoid keratosis [Unknown]
  - Contusion [Unknown]
  - Hypokalaemia [Unknown]
  - Rash [Unknown]
  - Swelling [Unknown]
  - Hyponatraemia [Unknown]
  - Gastric haemorrhage [Unknown]
  - Dermatitis contact [Unknown]
  - Skin fissures [Unknown]
  - Drug intolerance [Unknown]
  - Seborrhoeic dermatitis [Unknown]

NARRATIVE: CASE EVENT DATE: 201801
